FAERS Safety Report 4957728-4 (Version None)
Quarter: 2006Q1

REPORT INFORMATION
  Report Type: 
  Country: None (occurrence: None)
  Receive Date: 20060324
  Receipt Date: 20060316
  Transmission Date: 20060701
  Serious: Yes (Hospitalization)
  Sender: FDA-Public Use
  Company Number: 2006-01017

PATIENT
  Age: 37 Year
  Sex: Female

DRUGS (10)
  1. TRELSTAR DEPOT [Suspect]
     Indication: BREAST CANCER
     Dosage: 3.75 MG Q28 DAYS, INTRAMUSCULAR
     Route: 030
     Dates: start: 20040819, end: 20050920
  2. EXEMESTANE [Suspect]
     Indication: BREAST CANCER
     Dosage: 0.25 MG, DAILY, ORAL
     Route: 048
     Dates: start: 20040920, end: 20051103
  3. DARVOCET [Concomitant]
  4. PERCOCET [Concomitant]
  5. ALCOHOL (ETHANOL) [Concomitant]
  6. PRAZAC (FLUOXETINE HDYROCHLORIDE) [Concomitant]
  7. WELLBUTRIN [Concomitant]
  8. LEVOXYL [Concomitant]
  9. ATARALGIN (PARACETAMOL) [Concomitant]
  10. OTC [Concomitant]

REACTIONS (13)
  - ALCOHOL USE [None]
  - ANHEDONIA [None]
  - ASTHENIA [None]
  - DEPRESSION [None]
  - DISTURBANCE IN ATTENTION [None]
  - HYPOVENTILATION [None]
  - INCREASED APPETITE [None]
  - LOSS OF CONSCIOUSNESS [None]
  - MULTIPLE DRUG OVERDOSE INTENTIONAL [None]
  - PSYCHIATRIC SYMPTOM [None]
  - PSYCHOMOTOR RETARDATION [None]
  - SOCIAL AVOIDANT BEHAVIOUR [None]
  - SUICIDE ATTEMPT [None]
